FAERS Safety Report 8581368-1 (Version None)
Quarter: 2012Q3

REPORT INFORMATION
  Report Type: 
  Country: None (occurrence: None)
  Receive Date: 20120809
  Receipt Date: 20120730
  Transmission Date: 20120928
  Serious: Yes (Other)
  Sender: FDA-Public Use
  Company Number: AU-SANOFI-AVENTIS-2012SA054114

PATIENT
  Age: 59 Year
  Sex: Male

DRUGS (7)
  1. APIDRA [Concomitant]
  2. AMLODIPINE BESYLATE [Concomitant]
  3. LANTUS [Suspect]
     Route: 058
     Dates: start: 20090101
  4. LANTUS [Suspect]
     Route: 058
  5. PERINDOPRIL ERBUMINE [Concomitant]
  6. WARFARIN SODIUM [Concomitant]
  7. VYTORIN [Concomitant]

REACTIONS (5)
  - AORTIC VALVE REPLACEMENT [None]
  - BRADYARRHYTHMIA [None]
  - CARDIAC PACEMAKER INSERTION [None]
  - BLINDNESS [None]
  - CEREBROVASCULAR ACCIDENT [None]
